FAERS Safety Report 19868815 (Version 1)
Quarter: 2021Q3

REPORT INFORMATION
  Report Type: Report from Study
  Country: DE (occurrence: DE)
  Receive Date: 20210922
  Receipt Date: 20210922
  Transmission Date: 20211014
  Serious: Yes (Other)
  Sender: FDA-Public Use
  Company Number: DE-MYLANLABS-2021M1063532

PATIENT
  Sex: Female
  Weight: 46 kg

DRUGS (2)
  1. KISQALI [Suspect]
     Active Substance: RIBOCICLIB
     Indication: BREAST CANCER METASTATIC
     Dosage: 600 MILLIGRAM, QD
     Route: 048
     Dates: start: 20180528, end: 20180728
  2. LETROZOLE. [Suspect]
     Active Substance: LETROZOLE
     Indication: BREAST CANCER METASTATIC
     Dosage: 2.5 MILLIGRAM, QD
     Route: 048
     Dates: start: 20180528, end: 20180814

REACTIONS (12)
  - Concomitant disease aggravated [Unknown]
  - Ascites [Unknown]
  - Drug-induced liver injury [Recovered/Resolved]
  - Inguinal hernia [Unknown]
  - Hepatic enzyme increased [Recovered/Resolved]
  - Blood bilirubin increased [Unknown]
  - Blood alkaline phosphatase increased [Unknown]
  - Nasopharyngitis [Recovered/Resolved]
  - Liver function test abnormal [Recovered/Resolved]
  - Cholelithiasis [Unknown]
  - Hepatic steatosis [Unknown]
  - Transaminases increased [Unknown]

NARRATIVE: CASE EVENT DATE: 20180802
